FAERS Safety Report 11572957 (Version 2)
Quarter: 2015Q4

REPORT INFORMATION
  Report Type: Spontaneous
  Country: JP (occurrence: JP)
  Receive Date: 20150929
  Receipt Date: 20151214
  Transmission Date: 20160304
  Serious: Yes (Hospitalization, Other)
  Sender: FDA-Public Use
  Company Number: JP-BAYER-2015-425424

PATIENT
  Age: 78 Year
  Sex: Male
  Weight: 47.8 kg

DRUGS (8)
  1. ENALAPRIL [Concomitant]
     Active Substance: ENALAPRIL
     Dosage: UNK
     Route: 048
     Dates: end: 20150129
  2. REBAMIPIDE [Concomitant]
     Active Substance: REBAMIPIDE
     Dosage: UNK
     Dates: end: 20150129
  3. BASSAMIN GALEN [Concomitant]
     Dosage: UNK
     Route: 048
     Dates: end: 20150129
  4. NICORANDIL [Concomitant]
     Active Substance: NICORANDIL
     Dosage: UNK
     Dates: end: 20150129
  5. BAYASPIRIN [Suspect]
     Active Substance: ASPIRIN
     Indication: ANGINA PECTORIS
     Dosage: UNK
     Route: 048
     Dates: end: 20150125
  6. BAYASPIRIN [Suspect]
     Active Substance: ASPIRIN
     Indication: ANGINA PECTORIS
     Dosage: UNK
     Route: 048
     Dates: start: 20150227
  7. ARTIST [Concomitant]
     Active Substance: CARVEDILOL
     Dosage: UNK
     Route: 048
     Dates: end: 20150129
  8. AMLODIPINE [Concomitant]
     Active Substance: AMLODIPINE BESYLATE
     Dosage: UNK
     Route: 048
     Dates: end: 20150129

REACTIONS (5)
  - Haemorrhagic arteriovenous malformation [Recovering/Resolving]
  - Epistaxis [None]
  - Haemoptysis [None]
  - Haemoglobin decreased [None]
  - Arteriovenous malformation [Recovered/Resolved]

NARRATIVE: CASE EVENT DATE: 2015
